FAERS Safety Report 8822588 (Version 1)
Quarter: 2012Q4

REPORT INFORMATION
  Report Type: 
  Country: US (occurrence: US)
  Receive Date: 20121003
  Receipt Date: 20121003
  Transmission Date: 20130627
  Serious: No
  Sender: FDA-Public Use
  Company Number: US-ASTRAZENECA-2012SE64700

PATIENT
  Age: 80 Year
  Sex: Male
  Weight: 88 kg

DRUGS (8)
  1. NEXIUM [Suspect]
     Indication: GASTROOESOPHAGEAL REFLUX DISEASE
     Route: 048
     Dates: start: 2005
  2. NEXIUM [Suspect]
     Indication: GASTROOESOPHAGEAL REFLUX DISEASE
     Route: 048
  3. TOPROL XL [Suspect]
     Indication: HYPERTENSION
     Route: 048
     Dates: start: 1999
  4. PRILOSEC [Suspect]
     Indication: GASTROOESOPHAGEAL REFLUX DISEASE
     Route: 048
  5. CARDIZEM [Concomitant]
     Indication: BLOOD PRESSURE ABNORMAL
  6. DOXAZOSIN [Concomitant]
     Indication: PROSTATIC DISORDER
  7. DOXAZOSIN [Concomitant]
     Indication: BLOOD PRESSURE ABNORMAL
  8. VYTORIN [Concomitant]
     Indication: BLOOD CHOLESTEROL INCREASED

REACTIONS (5)
  - Body height decreased [Unknown]
  - Gastrooesophageal reflux disease [Unknown]
  - Prostatic disorder [Unknown]
  - Drug ineffective [Unknown]
  - Off label use [Unknown]
